FAERS Safety Report 24313128 (Version 3)
Quarter: 2025Q3

REPORT INFORMATION
  Report Type: Report from Study
  Country: US (occurrence: US)
  Receive Date: 20240912
  Receipt Date: 20250816
  Transmission Date: 20251020
  Serious: No
  Sender: ALEXION PHARMACEUTICALS
  Company Number: US-AstraZeneca-CH-00700401A

PATIENT
  Sex: Female

DRUGS (1)
  1. ULTOMIRIS [Suspect]
     Active Substance: RAVULIZUMAB-CWVZ
     Indication: Myasthenia gravis

REACTIONS (7)
  - Chest discomfort [Unknown]
  - Dyspnoea [Unknown]
  - Pruritus [Unknown]
  - Throat irritation [Unknown]
  - Drug hypersensitivity [Unknown]
  - Asthenia [Unknown]
  - Oropharyngeal discomfort [Unknown]
